FAERS Safety Report 15551198 (Version 1)
Quarter: 2018Q4

REPORT INFORMATION
  Report Type: Spontaneous
  Country: US (occurrence: US)
  Receive Date: 20181025
  Receipt Date: 20181025
  Transmission Date: 20190205
  Serious: No
  Sender: FDA-Public Use
  Company Number: None

PATIENT
  Age: 11 Year
  Sex: Male
  Weight: 49.5 kg

DRUGS (3)
  1. GUANFACINE HCL ER 2MG TB24 [Suspect]
     Active Substance: GUANFACINE
     Indication: ATTENTION DEFICIT/HYPERACTIVITY DISORDER
     Dosage: ?          QUANTITY:1 TABLET(S);?
     Route: 048
     Dates: start: 20180915, end: 20181022
  2. OCCASIONAL DYE-FREE IBUPROPHEN [Concomitant]
  3. CONCERTA FOR ADHD [Concomitant]

REACTIONS (7)
  - Depressed mood [None]
  - Product substitution issue [None]
  - Weight increased [None]
  - Obsessive-compulsive disorder [None]
  - Hostility [None]
  - Aggression [None]
  - Reaction to excipient [None]

NARRATIVE: CASE EVENT DATE: 20180901
